FAERS Safety Report 11247305 (Version 1)
Quarter: 2015Q3

REPORT INFORMATION
  Report Type: Spontaneous
  Country: US (occurrence: None)
  Receive Date: 20150706
  Receipt Date: 20150706
  Transmission Date: 20151125
  Serious: No
  Sender: FDA-Public Use
  Company Number: None

PATIENT
  Age: 85 Year
  Sex: Female
  Weight: 46.27 kg

DRUGS (7)
  1. DILTIAZEM [Suspect]
     Active Substance: DILTIAZEM
     Indication: HYPERTENSION
     Route: 048
     Dates: start: 20150630, end: 20150705
  2. WHEELCHAIR [Concomitant]
     Active Substance: DEVICE
  3. LUTEIN [Concomitant]
     Active Substance: LUTEIN
  4. WALKER [Concomitant]
  5. VITAMIN D [Concomitant]
     Active Substance: CHOLECALCIFEROL
  6. DILTIAZEM [Concomitant]
     Active Substance: DILTIAZEM
  7. COENZYME Q10 [Concomitant]
     Active Substance: UBIDECARENONE

REACTIONS (5)
  - Wrong technique in product usage process [None]
  - Feeling abnormal [None]
  - Incorrect dose administered [None]
  - Blood pressure increased [None]
  - Product physical issue [None]

NARRATIVE: CASE EVENT DATE: 20150704
